FAERS Safety Report 22242584 (Version 1)
Quarter: 2023Q2

REPORT INFORMATION
  Report Type: Spontaneous
  Country: US (occurrence: None)
  Receive Date: 20230420
  Receipt Date: 20230420
  Transmission Date: 20230722
  Serious: Yes (Other)
  Sender: FDA-Public Use
  Company Number: None

PATIENT
  Age: 32 Year
  Sex: Male
  Weight: 64.41 kg

DRUGS (1)
  1. DIVALPROEX SODIUM [Suspect]
     Active Substance: DIVALPROEX SODIUM
     Indication: Focal dyscognitive seizures

REACTIONS (4)
  - Seizure [None]
  - Nausea [None]
  - Vomiting [None]
  - Therapeutic response changed [None]

NARRATIVE: CASE EVENT DATE: 20090611
